FAERS Safety Report 8090557 (Version 5)
Quarter: 2014Q1

REPORT INFORMATION
  Report Type: Spontaneous
  Country: US (occurrence: US)
  Receive Date: 20110815
  Receipt Date: 20140106
  Transmission Date: 20141002
  Serious: No
  Sender: FDA-Public Use
  Company Number: US-ASTRAZENECA-2011SE47177

PATIENT
  Age: 64 Year
  Sex: Female
  Weight: 73.9 kg

DRUGS (2)
  1. TOPROL XL [Suspect]
     Indication: HYPERTENSION
     Dosage: 50 MG IN THE MORNING AND 25 MG AT NIGHT
     Route: 048
  2. CRESTOR [Suspect]
     Route: 048

REACTIONS (6)
  - Hypertension [Unknown]
  - Blood pressure fluctuation [Unknown]
  - Emotional disorder [Unknown]
  - Dizziness [Unknown]
  - Drug dispensing error [Unknown]
  - Intentional drug misuse [Unknown]
